FAERS Safety Report 10098231 (Version 3)
Quarter: 2014Q2

REPORT INFORMATION
  Report Type: Spontaneous
  Country: US (occurrence: US)
  Receive Date: 20140423
  Receipt Date: 20140507
  Transmission Date: 20141212
  Serious: Yes (Other)
  Sender: FDA-Public Use
  Company Number: US-JNJFOC-20140315426

PATIENT
  Sex: Female
  Weight: 64.86 kg

DRUGS (7)
  1. INVOKANA [Suspect]
     Indication: DIABETES MELLITUS
     Route: 048
     Dates: start: 20140219, end: 20140314
  2. INVOKANA [Suspect]
     Indication: DIABETES MELLITUS
     Route: 048
  3. DIAZEPAM [Concomitant]
     Indication: ANXIETY
     Dates: start: 2006
  4. LANTUS [Concomitant]
     Indication: DIABETES MELLITUS
     Route: 058
     Dates: start: 2012
  5. NOVOLOG [Concomitant]
     Indication: DIABETES MELLITUS
     Route: 058
     Dates: start: 2012
  6. SIMVASTATIN [Concomitant]
     Indication: HYPERLIPIDAEMIA
     Dates: start: 2010
  7. ZOLPIDEM [Concomitant]
     Indication: INSOMNIA
     Dates: start: 2010

REACTIONS (6)
  - Hypotension [Recovered/Resolved]
  - Tachycardia [Recovered/Resolved]
  - Orthostatic hypotension [Recovered/Resolved]
  - Syncope [Recovered/Resolved]
  - Dizziness [Recovered/Resolved]
  - Therapeutic response increased [Recovered/Resolved]
